FAERS Safety Report 24020973 (Version 1)
Quarter: 2024Q2

REPORT INFORMATION
  Report Type: Report from Study
  Country: CO (occurrence: CO)
  Receive Date: 20240627
  Receipt Date: 20240627
  Transmission Date: 20240715
  Serious: Yes (Death, Hospitalization, Disabling, Other)
  Sender: FDA-Public Use
  Company Number: CO-NOVOPROD-1243418

PATIENT
  Age: 82 Year
  Sex: Male

DRUGS (2)
  1. XULTOPHY 100/3.6 [Suspect]
     Active Substance: INSULIN DEGLUDEC\LIRAGLUTIDE
     Dosage: UNK (ADJUSTED DOSAGE)
     Route: 058
  2. XULTOPHY 100/3.6 [Suspect]
     Active Substance: INSULIN DEGLUDEC\LIRAGLUTIDE
     Indication: Type 2 diabetes mellitus
     Dosage: UNK DF,QD
     Route: 058

REACTIONS (7)
  - Decreased appetite [Unknown]
  - Death [Fatal]
  - Blood glucose increased [Unknown]
  - Limb discomfort [Unknown]
  - Weight decreased [Unknown]
  - Muscle atrophy [Unknown]
  - Gait disturbance [Unknown]

NARRATIVE: CASE EVENT DATE: 20240227
